FAERS Safety Report 7177037-5 (Version None)
Quarter: 2010Q4

REPORT INFORMATION
  Report Type: 
  Country: None (occurrence: None)
  Receive Date: 20101220
  Receipt Date: 20101207
  Transmission Date: 20110411
  Serious: Yes (Hospitalization, Other)
  Sender: FDA-Public Use
  Company Number: US-ELI_LILLY_AND_COMPANY-US201012003278

PATIENT
  Sex: Male

DRUGS (3)
  1. CIALIS [Suspect]
     Indication: ERECTILE DYSFUNCTION
     Dosage: 5 MG, DAILY (1/D)
  2. CIALIS [Suspect]
     Dosage: 20 MG, AS NEEDED
  3. VITAMINS [Concomitant]

REACTIONS (4)
  - DIABETES MELLITUS [None]
  - DRUG INEFFECTIVE [None]
  - MOOD ALTERED [None]
  - PROSTATE CANCER [None]
